FAERS Safety Report 6965083-3 (Version None)
Quarter: 2010Q3

REPORT INFORMATION
  Report Type: 
  Country: None (occurrence: None)
  Receive Date: 20100903
  Receipt Date: 20100825
  Transmission Date: 20110219
  Serious: Yes (Other)
  Sender: FDA-Public Use
  Company Number: US-JNJFOC-20100900655

PATIENT
  Sex: Female

DRUGS (2)
  1. DOXIL [Suspect]
     Indication: NEOPLASM MALIGNANT
     Route: 042
  2. ZD1839 [Suspect]
     Indication: NEOPLASM MALIGNANT
     Route: 048

REACTIONS (1)
  - METABOLIC DISORDER [None]
